FAERS Safety Report 4807917-4 (Version None)
Quarter: 2005Q4

REPORT INFORMATION
  Report Type: 
  Country: None (occurrence: None)
  Receive Date: 20051024
  Receipt Date: 20050707
  Transmission Date: 20060501
  Serious: Yes (Hospitalization, Other)
  Sender: FDA-Public Use
  Company Number: US-MERCK-0507USA01231

PATIENT
  Age: 73 Year
  Sex: Male
  Weight: 100 kg

DRUGS (16)
  1. VIOXX [Suspect]
     Indication: GUN SHOT WOUND
     Route: 048
     Dates: start: 20010101, end: 20040901
  2. VIOXX [Suspect]
     Route: 048
     Dates: start: 20020218
  3. VIOXX [Suspect]
     Route: 048
     Dates: start: 20040506
  4. VIOXX [Suspect]
     Indication: ARTHRITIS
     Route: 048
     Dates: start: 20010101, end: 20040901
  5. VIOXX [Suspect]
     Route: 048
     Dates: start: 20020218
  6. VIOXX [Suspect]
     Route: 048
     Dates: start: 20040506
  7. CYCLOBENZAPRINE HYDROCHLORIDE [Concomitant]
     Route: 065
  8. RANITIDINE [Concomitant]
     Route: 065
  9. ACETAMINOPHEN [Concomitant]
     Route: 065
  10. ATENOLOL [Concomitant]
     Indication: HYPERTENSION
     Route: 065
     Dates: start: 19950101
  11. VIAGRA [Concomitant]
     Route: 065
  12. DIGOXIN [Concomitant]
     Route: 065
  13. PRILOSEC [Concomitant]
     Route: 065
  14. ROXICET [Concomitant]
     Route: 065
  15. GASTROINTESTINAL PREPARATIONS (UNSPECIFIED) [Concomitant]
     Route: 065
  16. FLEXERIL [Concomitant]
     Route: 065

REACTIONS (16)
  - ALOPECIA [None]
  - BACK DISORDER [None]
  - BRADYCARDIA [None]
  - CARDIAC FAILURE CONGESTIVE [None]
  - CELLULITIS [None]
  - CEREBROVASCULAR ACCIDENT [None]
  - CHEST PAIN [None]
  - COLONIC POLYP [None]
  - HYPERTENSION [None]
  - INGUINAL HERNIA [None]
  - LACUNAR INFARCTION [None]
  - OESOPHAGEAL DILATATION [None]
  - TACHYCARDIA [None]
  - THROMBOCYTOPENIA [None]
  - THROMBOSIS [None]
  - TRANSIENT ISCHAEMIC ATTACK [None]
